FAERS Safety Report 13632665 (Version 6)
Quarter: 2017Q2

REPORT INFORMATION
  Report Type: Spontaneous
  Country: US (occurrence: US)
  Receive Date: 20170608
  Receipt Date: 20170628
  Transmission Date: 20170830
  Serious: Yes (Life-Threatening, Hospitalization, Disabling, Other)
  Sender: FDA-Public Use
  Company Number: US-BRISTOL-MYERS SQUIBB COMPANY-BMS-2017-048454

PATIENT
  Age: 44 Year
  Sex: Female

DRUGS (5)
  1. ABILIFY [Suspect]
     Active Substance: ARIPIPRAZOLE
     Indication: BIPOLAR DISORDER
     Dosage: 2 MG, QD
     Route: 065
     Dates: start: 201610, end: 20170303
  2. ABILIFY [Suspect]
     Active Substance: ARIPIPRAZOLE
     Indication: MANIA
     Route: 065
  3. EFFEXOR [Concomitant]
     Active Substance: VENLAFAXINE HYDROCHLORIDE
     Indication: PRODUCT USED FOR UNKNOWN INDICATION
     Route: 065
  4. TYLENOL [Suspect]
     Active Substance: ACETAMINOPHEN
     Indication: PRODUCT USED FOR UNKNOWN INDICATION
     Route: 065
  5. THORAZINE [Concomitant]
     Active Substance: CHLORPROMAZINE
     Indication: PRODUCT USED FOR UNKNOWN INDICATION
     Route: 065

REACTIONS (25)
  - Gait disturbance [Recovered/Resolved]
  - Syncope [Recovered/Resolved]
  - Compulsive shopping [Recovered/Resolved]
  - Skin exfoliation [Unknown]
  - Mania [Unknown]
  - Loss of consciousness [Not Recovered/Not Resolved]
  - Cognitive disorder [Not Recovered/Not Resolved]
  - Insomnia [Recovered/Resolved]
  - Dementia [Not Recovered/Not Resolved]
  - Amnesia [Not Recovered/Not Resolved]
  - Dyspnoea [Recovered/Resolved]
  - Depression [Unknown]
  - Blister [Unknown]
  - Decreased appetite [Unknown]
  - Tardive dyskinesia [Not Recovered/Not Resolved]
  - Delirium [Unknown]
  - Hypersomnia [Not Recovered/Not Resolved]
  - Disturbance in attention [Unknown]
  - Poverty of speech [Not Recovered/Not Resolved]
  - Prescribed underdose [Unknown]
  - Suicide attempt [Unknown]
  - Cough [Recovered/Resolved]
  - Schizophrenia [Unknown]
  - Aphasia [Not Recovered/Not Resolved]
  - Cholelithiasis [Unknown]

NARRATIVE: CASE EVENT DATE: 20170303
